FAERS Safety Report 11938849 (Version 1)
Quarter: 2016Q1

REPORT INFORMATION
  Report Type: Report from Study
  Country: JP (occurrence: JP)
  Receive Date: 20160122
  Receipt Date: 20160122
  Transmission Date: 20160526
  Serious: Yes (Other)
  Sender: FDA-Public Use
  Company Number: JP-GLAXOSMITHKLINE-B0871592A

PATIENT
  Age: 32 Year
  Sex: Male
  Weight: 83 kg

DRUGS (9)
  1. ROHYPNOL [Concomitant]
     Active Substance: FLUNITRAZEPAM
     Indication: INSOMNIA
     Route: 048
     Dates: start: 20120418, end: 20120615
  2. RISPERDAL [Concomitant]
     Active Substance: RISPERIDONE
     Indication: INSOMNIA
     Route: 048
     Dates: start: 20120514, end: 20120521
  3. LUVOX [Concomitant]
     Active Substance: FLUVOXAMINE MALEATE
     Route: 048
     Dates: start: 20120530, end: 20120604
  4. LUVOX [Concomitant]
     Active Substance: FLUVOXAMINE MALEATE
     Route: 048
     Dates: start: 20120418, end: 20120530
  5. LAMOTRIGINE. [Suspect]
     Active Substance: LAMOTRIGINE
     Indication: BIPOLAR I DISORDER
     Route: 048
     Dates: start: 20100516, end: 20120523
  6. LAMOTRIGINE. [Suspect]
     Active Substance: LAMOTRIGINE
     Indication: BIPOLAR I DISORDER
     Route: 048
     Dates: start: 20100524, end: 20120606
  7. LAMOTRIGINE. [Suspect]
     Active Substance: LAMOTRIGINE
     Indication: BIPOLAR I DISORDER
     Route: 048
     Dates: start: 20100607, end: 20120615
  8. BENZALIN [Concomitant]
     Active Substance: NITRAZEPAM
     Indication: INSOMNIA
     Route: 048
     Dates: start: 20120418, end: 20120615
  9. LIMAS [Suspect]
     Active Substance: LITHIUM CARBONATE
     Indication: MAJOR DEPRESSION
     Route: 048
     Dates: start: 20120429, end: 20120517

REACTIONS (1)
  - Renal impairment [Unknown]

NARRATIVE: CASE EVENT DATE: 20120419
